FAERS Safety Report 18929235 (Version 1)
Quarter: 2021Q1

REPORT INFORMATION
  Report Type: Spontaneous
  Country: US (occurrence: US)
  Receive Date: 20210223
  Receipt Date: 20210223
  Transmission Date: 20210420
  Serious: Yes (Other)
  Sender: FDA-Public Use
  Company Number: US-ASTRAZENECA-2021A071355

PATIENT
  Sex: Female
  Weight: 65.8 kg

DRUGS (1)
  1. FASENRA [Suspect]
     Active Substance: BENRALIZUMAB
     Indication: ASTHMA
     Dosage: 30MG, EVERY TWO MONTHS
     Route: 058
     Dates: start: 202010

REACTIONS (4)
  - Blood urine present [Unknown]
  - White blood cells urine [Unknown]
  - Kidney infection [Unknown]
  - Cystitis [Unknown]
